FAERS Safety Report 8542859-2 (Version None)
Quarter: 2012Q3

REPORT INFORMATION
  Report Type: 
  Country: None (occurrence: None)
  Receive Date: 20120727
  Receipt Date: 20120717
  Transmission Date: 20120928
  Serious: Yes (Other)
  Sender: FDA-Public Use
  Company Number: PL-AMGEN-POLSP2012045647

PATIENT
  Age: 58 Year
  Sex: Female
  Weight: 68 kg

DRUGS (3)
  1. ENBREL [Suspect]
     Indication: PRODUCT USED FOR UNKNOWN INDICATION
     Dosage: 50 MG, UNK
     Route: 058
     Dates: end: 20120605
  2. SULFASALAZINE [Concomitant]
     Dosage: 2 G, UNK
     Route: 048
     Dates: start: 20070101
  3. METHOTREXATE [Concomitant]
     Dosage: 25 MG, WEEKLY
     Route: 048
     Dates: start: 20070101

REACTIONS (3)
  - INJECTION SITE RASH [None]
  - INJECTION SITE ERYTHEMA [None]
  - INJECTION SITE SWELLING [None]
